FAERS Safety Report 4433402-8 (Version None)
Quarter: 2004Q3

REPORT INFORMATION
  Report Type: 
  Country: None (occurrence: None)
  Receive Date: 20040824
  Receipt Date: 20040812
  Transmission Date: 20050211
  Serious: Yes (Hospitalization)
  Sender: FDA-Public Use
  Company Number: 200410618BVD

PATIENT
  Age: 56 Year
  Sex: Male
  Weight: 85 kg

DRUGS (1)
  1. AVELOX [Suspect]
     Indication: ERYSIPELAS
     Dosage: 400 MG, QD, ORAL
     Route: 048
     Dates: start: 20040715, end: 20040716

REACTIONS (4)
  - BLISTER [None]
  - HYPERSENSITIVITY [None]
  - RASH PUSTULAR [None]
  - SKIN ULCER [None]
